FAERS Safety Report 4557524-6 (Version None)
Quarter: 2005Q1

REPORT INFORMATION
  Report Type: 
  Country: None (occurrence: None)
  Receive Date: 20050120
  Receipt Date: 20041029
  Transmission Date: 20050727
  Serious: Yes (Death, Other)
  Sender: FDA-Public Use
  Company Number: PHBS2004GB14674

PATIENT
  Age: 51 Year
  Sex: Male

DRUGS (7)
  1. DICLOFENAC SODIUM [Suspect]
     Dosage: 50 MG, TID
     Route: 065
  2. VORICONAZOLE [Suspect]
     Indication: ASPERGILLOSIS
     Dosage: 2 DOSES OF 360 MG
     Route: 042
  3. VORICONAZOLE [Suspect]
     Dosage: 180 MG, Q12H
     Route: 042
  4. PARACETAMOL+CODEINE PHOSPHATE (NGX) [Suspect]
     Dosage: UNK, PRN
     Route: 048
  5. TEMAZEPAM (NGX) [Suspect]
     Dosage: 10 MG/DAY
     Route: 065
  6. DOTHIEPIN HYDROCHLORIDE [Suspect]
     Dosage: 100 MG, QHS
     Route: 065
  7. ALCOHOL [Suspect]

REACTIONS (20)
  - ACUTE RESPIRATORY DISTRESS SYNDROME [None]
  - BLOOD ALKALINE PHOSPHATASE INCREASED [None]
  - BLOOD CREATINE PHOSPHOKINASE INCREASED [None]
  - BLOOD GLUCOSE INCREASED [None]
  - BLOOD LACTATE DEHYDROGENASE INCREASED [None]
  - BLOOD UREA INCREASED [None]
  - CONCOMITANT DISEASE AGGRAVATED [None]
  - CONFUSIONAL STATE [None]
  - COUGH [None]
  - DRUG LEVEL INCREASED [None]
  - FEELING DRUNK [None]
  - HEPATIC CIRRHOSIS [None]
  - HEPATOSPLENOMEGALY [None]
  - HYPOGLYCAEMIA [None]
  - INFUSION RELATED REACTION [None]
  - LYMPHOPENIA [None]
  - MEAN CELL VOLUME INCREASED [None]
  - PERITONEAL HAEMORRHAGE [None]
  - PYREXIA [None]
  - RESPIRATORY FAILURE [None]
